FAERS Safety Report 7431144-8 (Version None)
Quarter: 2011Q2

REPORT INFORMATION
  Report Type: 
  Country: None (occurrence: None)
  Receive Date: 20110421
  Receipt Date: 20110224
  Transmission Date: 20111010
  Serious: Yes (Other)
  Sender: FDA-Public Use
  Company Number: US-BAYER-2011-034297

PATIENT

DRUGS (3)
  1. ALEVE (CAPLET) [Suspect]
     Route: 048
  2. ASPIRIN [Suspect]
     Route: 048
  3. ADVIL LIQUI-GELS [Suspect]

REACTIONS (1)
  - ANAPHYLACTIC REACTION [None]
